FAERS Safety Report 10247476 (Version 1)
Quarter: 2014Q2

REPORT INFORMATION
  Report Type: Spontaneous
  Country: JP (occurrence: JP)
  Receive Date: 20140619
  Receipt Date: 20140619
  Transmission Date: 20141212
  Serious: No
  Sender: FDA-Public Use
  Company Number: JP-ASTRAZENECA-2014SE45004

PATIENT
  Age: 21 Year
  Sex: Female

DRUGS (2)
  1. QUETIAPINE [Suspect]
     Indication: SCHIZOPHRENIA
     Dosage: MAX 800 MG
     Route: 048
  2. OLANZAPINE [Concomitant]
     Dosage: MAXIMUM DOSE OF 30 MG

REACTIONS (1)
  - Prescribed overdose [Unknown]
